FAERS Safety Report 6649663-0 (Version None)
Quarter: 2010Q1

REPORT INFORMATION
  Report Type: 
  Country: None (occurrence: None)
  Receive Date: 20100324
  Receipt Date: 20090422
  Transmission Date: 20100710
  Serious: No
  Sender: FDA-Public Use
  Company Number: US-AMGEN-KDL344109

PATIENT
  Age: 62 Year
  Sex: Female

DRUGS (2)
  1. NEULASTA [Suspect]
     Indication: CHEMOTHERAPY
     Dates: start: 20090305
  2. DOCETAXEL [Concomitant]
     Route: 042

REACTIONS (4)
  - ALOPECIA [None]
  - GASTROINTESTINAL DISORDER [None]
  - PAIN [None]
  - WHITE BLOOD CELL COUNT DECREASED [None]
